FAERS Safety Report 11663692 (Version 1)
Quarter: 2015Q4

REPORT INFORMATION
  Report Type: Spontaneous
  Country: None (occurrence: US)
  Receive Date: 20151027
  Receipt Date: 20151027
  Transmission Date: 20160304
  Serious: No
  Sender: FDA-Public Use
  Company Number: US-MYLANLABS-2014SP005591

PATIENT
  Sex: Female

DRUGS (2)
  1. TORISEL [Suspect]
     Active Substance: TEMSIROLIMUS
     Dates: end: 2014
  2. DEXAMETHASONE. [Suspect]
     Active Substance: DEXAMETHASONE
     Dates: start: 2014, end: 2014

REACTIONS (2)
  - Rash [Unknown]
  - Fungal infection [Unknown]

NARRATIVE: CASE EVENT DATE: 2014
